FAERS Safety Report 7775064-8 (Version None)
Quarter: 2011Q3

REPORT INFORMATION
  Report Type: 
  Country: None (occurrence: None)
  Receive Date: 20110923
  Receipt Date: 20110914
  Transmission Date: 20111222
  Serious: Yes (Hospitalization, Other)
  Sender: FDA-Public Use
  Company Number: CA-JNJFOC-20110906904

PATIENT
  Sex: Female
  Weight: 86 kg

DRUGS (4)
  1. PREDNISONE [Concomitant]
     Dosage: 2 MG WEANING DOSE
     Route: 065
  2. REMICADE [Suspect]
     Indication: CROHN'S DISEASE
     Route: 042
     Dates: start: 20101001
  3. CYMBALTA [Concomitant]
     Route: 065
  4. IMURAN [Concomitant]
     Route: 065

REACTIONS (2)
  - INTESTINAL PERFORATION [None]
  - WOUND DEHISCENCE [None]
